FAERS Safety Report 6217317-0 (Version None)
Quarter: 2009Q2

REPORT INFORMATION
  Report Type: 
  Country: None (occurrence: None)
  Receive Date: 20090608
  Receipt Date: 20090525
  Transmission Date: 20091009
  Serious: Yes (Hospitalization)
  Sender: FDA-Public Use
  Company Number: IT-PFIZER INC-2009194066

PATIENT
  Age: 77 Year

DRUGS (11)
  1. SUNITINIB MALATE [Suspect]
     Indication: HEPATIC NEOPLASM MALIGNANT RECURRENT
     Dosage: 37.5 MG, 1X/DAY
     Route: 048
     Dates: start: 20090319, end: 20090402
  2. URSODEOXYCHOLIC ACID [Concomitant]
     Indication: HEPATIC CIRRHOSIS
     Dosage: 600 MG, 1X/DAY
     Dates: start: 20081112
  3. PANTOPRAZOLE [Concomitant]
     Indication: PROPHYLAXIS
     Dosage: 40 MG, 1X/DAY
     Dates: start: 20081112
  4. FUROSEMIDE [Concomitant]
     Indication: FLUID RETENTION
     Dosage: 25 MG, 1X/DAY
     Dates: start: 20081112
  5. LACTITOL [Concomitant]
     Indication: HEPATIC ENCEPHALOPATHY PROPHYLAXIS
     Dosage: UNK
     Dates: start: 20081112
  6. POTASSIUM CANRENOATE [Concomitant]
     Indication: FLUID RETENTION
     Dosage: 100 MG, 1X/DAY
     Dates: start: 20081112
  7. CITALOPRAM [Concomitant]
     Indication: DEPRESSION
     Dosage: 20 MG, 1X/DAY
  8. ALPRAZOLAM [Concomitant]
     Indication: ANXIETY
     Dosage: 10 UNK, AS NEEDED
  9. ALLOPURINOL [Concomitant]
     Indication: HYPERURICAEMIA
     Dosage: 150 MG, 1X/DAY
  10. LOSAZID [Concomitant]
     Indication: HYPERTENSION
     Dosage: 0.5 UNK, 1X/DAY
  11. HYDROXYZINE [Concomitant]
     Indication: PRURITUS
     Dosage: 25 MG, 1X/DAY

REACTIONS (2)
  - FATIGUE [None]
  - HEPATIC ENCEPHALOPATHY [None]
